FAERS Safety Report 25847991 (Version 1)
Quarter: 2025Q3

REPORT INFORMATION
  Report Type: Spontaneous
  Country: JP (occurrence: JP)
  Receive Date: 20250925
  Receipt Date: 20250925
  Transmission Date: 20251020
  Serious: Yes (Other)
  Sender: BRISTOL-MYERS SQUIBB COMPANY
  Company Number: JP-BRISTOL-MYERS SQUIBB COMPANY-2025-129020

PATIENT
  Age: 77 Year
  Sex: Male

DRUGS (2)
  1. YERVOY [Suspect]
     Active Substance: IPILIMUMAB
     Indication: Renal cancer
  2. OPDIVO [Suspect]
     Active Substance: NIVOLUMAB
     Indication: Renal cancer

REACTIONS (7)
  - Generalised oedema [Unknown]
  - Malaise [Unknown]
  - Dyspnoea [Unknown]
  - Renal disorder [Unknown]
  - Bladder cancer recurrent [Unknown]
  - Hypopharyngeal cancer [Unknown]
  - Brain neoplasm [Unknown]
